FAERS Safety Report 5560194-1 (Version None)
Quarter: 2007Q4

REPORT INFORMATION
  Report Type: 
  Country: None (occurrence: None)
  Receive Date: 20071214
  Receipt Date: 20071105
  Transmission Date: 20080405
  Serious: Yes (Hospitalization)
  Sender: FDA-Public Use
  Company Number: US-ABBOTT-07P-163-0423474-00

PATIENT
  Sex: Male
  Weight: 87.622 kg

DRUGS (1)
  1. HUMIRA [Suspect]
     Indication: RHEUMATOID ARTHRITIS
     Route: 058
     Dates: start: 20070801

REACTIONS (4)
  - CONSTIPATION [None]
  - DIARRHOEA [None]
  - GASTROINTESTINAL DISORDER [None]
  - SYNCOPE [None]
